FAERS Safety Report 4811703-9 (Version None)
Quarter: 2005Q4

REPORT INFORMATION
  Report Type: 
  Country: None (occurrence: None)
  Receive Date: 20051025
  Receipt Date: 20051012
  Transmission Date: 20060501
  Serious: Yes (Other)
  Sender: FDA-Public Use
  Company Number: 2005142677

PATIENT
  Age: 3 Year
  Sex: Male
  Weight: 13 kg

DRUGS (2)
  1. MAGNAMYCIN [Suspect]
     Indication: MENINGITIS
     Dosage: 1.5 GRAM (500 MG, TID INTERVAL:  DAILY), INTRAVENOUS
     Route: 042
     Dates: start: 20051003, end: 20051011
  2. AMIKACIN [Concomitant]

REACTIONS (2)
  - CHILLS [None]
  - PYREXIA [None]
